FAERS Safety Report 20198839 (Version 2)
Quarter: 2022Q1

REPORT INFORMATION
  Report Type: Spontaneous
  Country: CH (occurrence: None)
  Receive Date: 20211217
  Receipt Date: 20220114
  Transmission Date: 20220423
  Serious: Yes (Other)
  Sender: FDA-Public Use
  Company Number: 2021A871821

PATIENT
  Age: 820 Month
  Sex: Male
  Weight: 54 kg

DRUGS (5)
  1. LYNPARZA [Suspect]
     Active Substance: OLAPARIB
     Indication: Prostate cancer metastatic
     Route: 048
     Dates: start: 20210920, end: 20211209
  2. TRAMADOL [Concomitant]
     Active Substance: TRAMADOL
     Dates: start: 20211028, end: 20211202
  3. TRAMADOL [Concomitant]
     Active Substance: TRAMADOL
     Dates: start: 20211203
  4. CALCIUM\CHOLECALCIFEROL [Concomitant]
     Active Substance: CALCIUM\CHOLECALCIFEROL
     Dosage: 500/400 MG
  5. ASPIRIN [Concomitant]
     Active Substance: ASPIRIN

REACTIONS (2)
  - Malignant neoplasm progression [Unknown]
  - Drug ineffective [Unknown]

NARRATIVE: CASE EVENT DATE: 20211201
